FAERS Safety Report 10198927 (Version 3)
Quarter: 2014Q2

REPORT INFORMATION
  Report Type: Spontaneous
  Country: DZ (occurrence: DZ)
  Receive Date: 20140527
  Receipt Date: 20140606
  Transmission Date: 20141212
  Serious: Yes (Other)
  Sender: FDA-Public Use
  Company Number: DZ-SA-2014SA065427

PATIENT
  Age: 45 Year
  Sex: Female

DRUGS (1)
  1. TAXOTERE [Suspect]
     Indication: BREAST CANCER
     Dosage: PERFUSION
     Dates: start: 20140407, end: 20140407

REACTIONS (3)
  - Toxic skin eruption [Recovered/Resolved]
  - Aplasia [Recovered/Resolved]
  - Thermal burn [Recovered/Resolved]
